FAERS Safety Report 4443410-9 (Version None)
Quarter: 2004Q3

REPORT INFORMATION
  Report Type: 
  Country: None (occurrence: None)
  Receive Date: 20040903
  Receipt Date: 20040903
  Transmission Date: 20050211
  Serious: No
  Sender: FDA-Public Use
  Company Number: None

PATIENT
  Age: 45 Year
  Sex: Female
  Weight: 77.11 kg

DRUGS (2)
  1. GAMUNEX [Suspect]
     Indication: MULTIPLE SCLEROSIS
     Dates: start: 20040721
  2. GAMUNEX [Suspect]

REACTIONS (3)
  - CHEST DISCOMFORT [None]
  - COUGH [None]
  - INFUSION RELATED REACTION [None]
